FAERS Safety Report 15608302 (Version 2)
Quarter: 2019Q1

REPORT INFORMATION
  Report Type: Spontaneous
  Country: IE (occurrence: IE)
  Receive Date: 20181112
  Receipt Date: 20190108
  Transmission Date: 20190417
  Serious: Yes (Other)
  Sender: FDA-Public Use
  Company Number: IE-PFIZER INC-2018385958

PATIENT
  Age: 51 Year
  Sex: Female

DRUGS (6)
  1. METHOTREXATE SODIUM. [Suspect]
     Active Substance: METHOTREXATE SODIUM
     Indication: ARTHRITIS
  2. AMITRIPTYLINE [Concomitant]
     Active Substance: AMITRIPTYLINE
     Indication: PAIN
  3. METHOTREXATE SODIUM. [Suspect]
     Active Substance: METHOTREXATE SODIUM
     Indication: PSORIASIS
     Dosage: 20 MG, WEEKLY
     Dates: end: 2017
  4. METHOTREXATE SODIUM. [Suspect]
     Active Substance: METHOTREXATE SODIUM
     Indication: FIBROMYALGIA
  5. FOLIC ACID. [Suspect]
     Active Substance: FOLIC ACID
     Dosage: UNK
     Dates: end: 201506
  6. SOLPADEINE [Concomitant]

REACTIONS (4)
  - Haemorrhage [Recovered/Resolved]
  - Pulmonary mass [Unknown]
  - Agitation [Recovered/Resolved]
  - Headache [Recovered/Resolved]

NARRATIVE: CASE EVENT DATE: 201406
